FAERS Safety Report 4435610-9 (Version None)
Quarter: 2004Q3

REPORT INFORMATION
  Report Type: 
  Country: None (occurrence: None)
  Receive Date: 20040726
  Receipt Date: 20040510
  Transmission Date: 20050211
  Serious: No
  Sender: FDA-Public Use
  Company Number: USA040566626

PATIENT
  Age: 49 Year
  Sex: Female
  Weight: 52 kg

DRUGS (13)
  1. FORTEO [Suspect]
     Indication: OSTEOPOROSIS
     Dosage: 20 UG/DAY
     Dates: start: 20040422, end: 20040509
  2. INTERFERON [Concomitant]
  3. BUSPAR [Concomitant]
  4. WELLBUTRIN [Concomitant]
  5. PROTONIX [Concomitant]
  6. DETROL LA (TOLTERODINE L-TARTRATE) [Concomitant]
  7. PLAQUENIL [Concomitant]
  8. ZANAFLEX [Concomitant]
  9. DILAUDID [Concomitant]
  10. ELAVIL [Concomitant]
  11. PROVIGIL [Concomitant]
  12. METHADONE HCL [Concomitant]
  13. AVONEX [Concomitant]

REACTIONS (10)
  - ARTHROPATHY [None]
  - BALANCE DISORDER [None]
  - FALL [None]
  - FATIGUE [None]
  - HEART RATE INCREASED [None]
  - HYPERSOMNIA [None]
  - INJECTION SITE HAEMORRHAGE [None]
  - NAUSEA [None]
  - TREMOR [None]
  - WEIGHT DECREASED [None]
